FAERS Safety Report 6834544-X (Version None)
Quarter: 2010Q3

REPORT INFORMATION
  Report Type: 
  Country: None (occurrence: None)
  Receive Date: 20100712
  Receipt Date: 20070419
  Transmission Date: 20110219
  Serious: No
  Sender: FDA-Public Use
  Company Number: US-PFIZER INC-2007032783

PATIENT
  Sex: Male
  Weight: 95 kg

DRUGS (6)
  1. CHANTIX [Suspect]
     Indication: SMOKING CESSATION THERAPY
     Dates: start: 20070401
  2. ATENOLOL [Concomitant]
  3. NORVASC [Concomitant]
  4. NEXIUM [Concomitant]
  5. TRICOR [Concomitant]
  6. VYTORIN [Concomitant]

REACTIONS (1)
  - INSOMNIA [None]
